FAERS Safety Report 5376893-0 (Version None)
Quarter: 2007Q2

REPORT INFORMATION
  Report Type: 
  Country: None (occurrence: None)
  Receive Date: 20070628
  Receipt Date: 20070628
  Transmission Date: 20071010
  Serious: No
  Sender: FDA-Public Use
  Company Number: None

PATIENT
  Age: 42 Year
  Sex: Female
  Weight: 64.8644 kg

DRUGS (4)
  1. CHANTIX [Suspect]
     Indication: TOBACCO ABUSE
     Dosage: .5MG 1QD PO
     Route: 048
     Dates: start: 20070609
  2. CHANTIX [Suspect]
     Dosage: 1MG 1 QD PO
     Route: 048
     Dates: start: 20070620
  3. ADVIL LIQUI-GELS [Concomitant]
  4. VALIUM [Concomitant]

REACTIONS (3)
  - CHILLS [None]
  - DIARRHOEA [None]
  - NAUSEA [None]
